FAERS Safety Report 9087660 (Version 1)
Quarter: 2013Q1

REPORT INFORMATION
  Report Type: Spontaneous
  Country: NL (occurrence: NL)
  Receive Date: 20130201
  Receipt Date: 20130201
  Transmission Date: 20140127
  Serious: Yes (Hospitalization)
  Sender: FDA-Public Use
  Company Number: PHHY2013NL007531

PATIENT
  Sex: 0

DRUGS (1)
  1. AMOXICILLIN-CLAVULANIC ACID [Suspect]
     Dosage: 2 DF, UNK
     Route: 048

REACTIONS (1)
  - Lung infiltration [Unknown]
